FAERS Safety Report 7270178-3 (Version None)
Quarter: 2011Q1

REPORT INFORMATION
  Report Type: 
  Country: None (occurrence: None)
  Receive Date: 20110202
  Receipt Date: 20110124
  Transmission Date: 20110831
  Serious: Yes (Hospitalization)
  Sender: FDA-Public Use
  Company Number: US-EISAI INC-E7389-01141-CLI-US

PATIENT
  Sex: Female

DRUGS (28)
  1. IBUPROFEN [Concomitant]
     Route: 048
     Dates: start: 20090903
  2. FISH OIL [Concomitant]
     Route: 048
     Dates: start: 20000101
  3. FOLIC ACID [Concomitant]
     Route: 048
     Dates: start: 20100805
  4. ALOXI [Concomitant]
     Indication: NAUSEA
     Route: 042
     Dates: start: 20101014, end: 20101014
  5. MULTI-VITAMINS [Concomitant]
     Route: 048
     Dates: start: 20000101
  6. ATIVAN [Concomitant]
     Indication: ANXIETY
     Route: 048
     Dates: start: 20090811
  7. DETROL LA [Concomitant]
     Indication: INCONTINENCE
     Route: 048
     Dates: start: 20010101
  8. E7389 (BOLD) [Suspect]
     Indication: NON-SMALL CELL LUNG CANCER
     Dosage: UNKNOWN
     Route: 041
  9. ALPRAZOLAM [Concomitant]
     Indication: ANXIETY
     Route: 048
     Dates: start: 20100506
  10. DEXAMETHASONE [Concomitant]
     Route: 048
     Dates: start: 20100812
  11. PEMETREXED [Concomitant]
     Indication: NON-SMALL CELL LUNG CANCER
     Route: 041
  12. OMEPRAZOLE [Concomitant]
     Route: 048
     Dates: start: 19890101
  13. ALOXI [Concomitant]
     Route: 042
     Dates: start: 20100923, end: 20100923
  14. VICODIN [Concomitant]
     Indication: PAIN
     Route: 048
     Dates: start: 20090821
  15. METOPROLOL TARTRATE [Concomitant]
     Indication: HYPERTENSION
     Route: 048
     Dates: start: 20090724
  16. TESSALON [Concomitant]
     Indication: PAIN
  17. VITAMIN B6 [Concomitant]
     Route: 048
     Dates: start: 20100301
  18. ALOXI [Concomitant]
     Route: 042
     Dates: start: 20100902, end: 20100902
  19. ALOXI [Concomitant]
     Route: 042
     Dates: start: 20100813, end: 20100813
  20. TESSALON [Concomitant]
     Route: 048
     Dates: start: 20110113
  21. VITAMIN D [Concomitant]
     Indication: OSTEOPENIA
     Route: 048
     Dates: start: 20050101
  22. SIMVASTATIN [Concomitant]
     Indication: HYPERCHOLESTEROLAEMIA
     Route: 048
     Dates: start: 20030101
  23. ASCORBIC ACID [Concomitant]
     Route: 048
     Dates: start: 20050101
  24. TRIAMCINOLONE ACETONIDE [Concomitant]
     Indication: RASH
     Route: 061
     Dates: start: 20090801
  25. ZOLOFT [Concomitant]
     Indication: DEPRESSION
     Route: 048
     Dates: start: 20100301
  26. ASPIRIN [Concomitant]
     Route: 048
     Dates: start: 19990101
  27. CALCIUM [Concomitant]
     Indication: OSTEOPENIA
     Route: 048
     Dates: start: 20050101
  28. TYLENOL-500 [Concomitant]
     Indication: HEADACHE
     Route: 048
     Dates: start: 20100910

REACTIONS (1)
  - PULMONARY EMBOLISM [None]
